FAERS Safety Report 7348926-3 (Version None)
Quarter: 2011Q1

REPORT INFORMATION
  Report Type: 
  Country: None (occurrence: None)
  Receive Date: 20110314
  Receipt Date: 20110301
  Transmission Date: 20110831
  Serious: No
  Sender: FDA-Public Use
  Company Number: US-ROXANE LABORATORIES, INC.-2011-RO-00281RO

PATIENT
  Sex: Female

DRUGS (1)
  1. LEVETIRACETAM [Suspect]
     Indication: CONVULSION

REACTIONS (3)
  - ABDOMINAL DISCOMFORT [None]
  - URTICARIA [None]
  - VOMITING [None]
